FAERS Safety Report 8182712-X (Version None)
Quarter: 2012Q1

REPORT INFORMATION
  Report Type: 
  Country: None (occurrence: None)
  Receive Date: 20120305
  Receipt Date: 20120301
  Transmission Date: 20120608
  Serious: No
  Sender: FDA-Public Use
  Company Number: US-PFIZER INC-2012056645

PATIENT
  Sex: Female
  Weight: 64.853 kg

DRUGS (7)
  1. MOBIC [Concomitant]
     Indication: ANTIINFLAMMATORY THERAPY
  2. ASPIRIN [Concomitant]
     Indication: CEREBROVASCULAR ACCIDENT PROPHYLAXIS
     Dosage: 80 MG,DAILY
  3. MOBIC [Concomitant]
     Indication: ARTHRITIS
     Dosage: 15 MG,DAILY
  4. ALBUTEROL [Concomitant]
     Indication: CHRONIC OBSTRUCTIVE PULMONARY DISEASE
     Dosage: UNK, AS NEEDED
  5. DOXEPIN [Concomitant]
     Indication: NEURODERMATITIS
     Dosage: 75 MG,DAILY
  6. SYMBICORT [Concomitant]
     Indication: CHRONIC OBSTRUCTIVE PULMONARY DISEASE
     Dosage: 160/4.5 MCG, 2X/DAY
  7. CHANTIX [Suspect]
     Indication: SMOKING CESSATION THERAPY
     Dosage: UNK
     Route: 048
     Dates: start: 20120101

REACTIONS (2)
  - HYPERSOMNIA [None]
  - ABNORMAL DREAMS [None]
